FAERS Safety Report 13009706 (Version 2)
Quarter: 2018Q4

REPORT INFORMATION
  Report Type: Other
  Country: FR (occurrence: FR)
  Receive Date: 20161208
  Receipt Date: 20181207
  Transmission Date: 20190204
  Serious: Yes (Other)
  Sender: FDA-Public Use
  Company Number: FR-MERCK KGAA-1060583

PATIENT
  Age: 71 Year
  Sex: Male

DRUGS (9)
  1. ATAZANAVIR. [Interacting]
     Active Substance: ATAZANAVIR SULFATE
     Dates: start: 200707
  2. EUTHYROX [Suspect]
     Active Substance: LEVOTHYROXINE SODIUM
     Indication: HYPOTHYROIDIC GOITRE
     Dates: start: 2004, end: 201510
  3. ABACAVIR. [Concomitant]
     Active Substance: ABACAVIR
     Dates: start: 201507
  4. EUTHYROX [Suspect]
     Active Substance: LEVOTHYROXINE SODIUM
  5. RITONAVIR. [Interacting]
     Active Substance: RITONAVIR
     Dates: start: 200707
  6. TENOFOVIR [Concomitant]
     Active Substance: TENOFOVIR
  7. EMTRICITABINE [Concomitant]
     Active Substance: EMTRICITABINE
  8. DOLUTEGRAVIR [Concomitant]
     Active Substance: DOLUTEGRAVIR
     Dates: start: 201507
  9. LAMIVUDINE. [Concomitant]
     Active Substance: LAMIVUDINE
     Dates: start: 201507

REACTIONS (2)
  - Hyperthyroidism [Recovered/Resolved]
  - Drug interaction [Recovered/Resolved]

NARRATIVE: CASE EVENT DATE: 201510
